FAERS Safety Report 9798652 (Version 2)
Quarter: 2015Q3

REPORT INFORMATION
  Report Type: Spontaneous
  Country: US (occurrence: US)
  Receive Date: 20140106
  Receipt Date: 20150806
  Transmission Date: 20151125
  Serious: No
  Sender: FDA-Public Use
  Company Number: US-GILEAD-2010-0029587

PATIENT
  Age: 67 Year
  Sex: Female
  Weight: 88.2 kg

DRUGS (14)
  1. TRIAMT/ HCTZ [Concomitant]
  2. LASIX [Concomitant]
     Active Substance: FUROSEMIDE
  3. LETAIRIS [Suspect]
     Active Substance: AMBRISENTAN
     Indication: PULMONARY ARTERIAL HYPERTENSION
     Route: 048
  4. CLONIDINE. [Concomitant]
     Active Substance: CLONIDINE
  5. DILTIAZEM [Concomitant]
     Active Substance: DILTIAZEM
  6. ATENOLOL. [Concomitant]
     Active Substance: ATENOLOL
  7. POT CL [Concomitant]
  8. MULTIVITAMIN [Concomitant]
     Active Substance: VITAMINS
  9. DIOVAN [Concomitant]
     Active Substance: VALSARTAN
  10. COUMADIN [Concomitant]
     Active Substance: WARFARIN SODIUM
  11. IPRATROPIUM BROMIDE/SALBUTAMOL SULFATE [Concomitant]
  12. LEVOTHROID [Concomitant]
     Active Substance: LEVOTHYROXINE SODIUM
  13. ALENDRONATE [Concomitant]
     Active Substance: ALENDRONATE SODIUM
  14. CALCIUM + D [Concomitant]
     Active Substance: CALCIUM\VITAMIN D

REACTIONS (3)
  - Headache [Recovering/Resolving]
  - Swelling [Recovering/Resolving]
  - Dyspnoea [Recovering/Resolving]

NARRATIVE: CASE EVENT DATE: 20100601
